FAERS Safety Report 24921558 (Version 1)
Quarter: 2025Q1

REPORT INFORMATION
  Report Type: Spontaneous
  Country: US (occurrence: US)
  Receive Date: 20250204
  Receipt Date: 20250204
  Transmission Date: 20250409
  Serious: No
  Sender: AMGEN
  Company Number: US-AMGEN-USASP2025021435

PATIENT
  Age: 72 Year
  Sex: Female

DRUGS (1)
  1. AMJEVITA [Suspect]
     Active Substance: ADALIMUMAB-ATTO
     Indication: Product used for unknown indication
     Route: 065
     Dates: start: 20250129

REACTIONS (5)
  - Eye disorder [Unknown]
  - Device difficult to use [Unknown]
  - Product communication issue [Unknown]
  - Wrong technique in product usage process [Unknown]
  - Drug dose omission by device [Unknown]

NARRATIVE: CASE EVENT DATE: 20250129
